FAERS Safety Report 6354549-5 (Version None)
Quarter: 2009Q3

REPORT INFORMATION
  Report Type: 
  Country: None (occurrence: None)
  Receive Date: 20090909
  Receipt Date: 20090826
  Transmission Date: 20100115
  Serious: Yes (Hospitalization, Disabling, Congenital Anomaly)
  Sender: FDA-Public Use
  Company Number: 1000008678

PATIENT
  Sex: Male
  Weight: 12.15 kg

DRUGS (1)
  1. CITALOPRAM HYDROBROMIDE [Suspect]
     Dosage: 20 MG (20 MG, 1 IN 1 D), TRANSPLACENTAL
     Route: 064

REACTIONS (5)
  - CEREBRAL INFARCTION [None]
  - CEREBRAL PALSY [None]
  - CONVULSION NEONATAL [None]
  - HEMIPLEGIA [None]
  - MATERNAL DRUGS AFFECTING FOETUS [None]
